FAERS Safety Report 13517371 (Version 11)
Quarter: 2018Q2

REPORT INFORMATION
  Report Type: Spontaneous
  Country: JP (occurrence: JP)
  Receive Date: 20170505
  Receipt Date: 20180414
  Transmission Date: 20180711
  Serious: Yes (Death, Life-Threatening, Hospitalization, Other)
  Sender: FDA-Public Use
  Company Number: JP-009507513-1704JPN002599J

PATIENT
  Age: 70 Year
  Sex: Female
  Weight: 47 kg

DRUGS (8)
  1. KEYTRUDA [Suspect]
     Active Substance: PEMBROLIZUMAB
     Indication: SQUAMOUS CELL CARCINOMA OF LUNG
     Dosage: 200 MG, Q3W
     Route: 041
     Dates: start: 20170405, end: 20170405
  2. OXYCONTIN [Concomitant]
     Active Substance: OXYCODONE HYDROCHLORIDE
     Indication: SQUAMOUS CELL CARCINOMA OF LUNG
     Dosage: 10 MG, BID
     Route: 048
  3. CYMBALTA [Concomitant]
     Active Substance: DULOXETINE HYDROCHLORIDE
     Dosage: 1 DF, QD
     Route: 048
  4. OXYCONTIN [Concomitant]
     Active Substance: OXYCODONE HYDROCHLORIDE
     Dosage: 20 MG, BID
     Route: 048
  5. RINDERON V [Concomitant]
     Active Substance: BETAMETHASONE VALERATE
     Indication: SQUAMOUS CELL CARCINOMA OF LUNG
     Dosage: 0.5 MG, QD
     Route: 048
     Dates: start: 20170403, end: 20170416
  6. LYRICA [Concomitant]
     Active Substance: PREGABALIN
     Indication: SQUAMOUS CELL CARCINOMA OF LUNG
     Dosage: 1 DF, QD
     Route: 048
     Dates: end: 20170426
  7. CELECOX [Concomitant]
     Active Substance: CELECOXIB
     Indication: SQUAMOUS CELL CARCINOMA OF LUNG
     Dosage: 2 DF, BID
     Route: 048
  8. TAKEPRON [Concomitant]
     Active Substance: LANSOPRAZOLE
     Indication: PROPHYLAXIS AGAINST GASTROINTESTINAL ULCER
     Dosage: 15 MG, QD
     Route: 048
     Dates: end: 20170416

REACTIONS (4)
  - Pneumonia aspiration [Fatal]
  - Melaena [Recovering/Resolving]
  - Nausea [Not Recovered/Not Resolved]
  - Malignant neoplasm progression [Unknown]

NARRATIVE: CASE EVENT DATE: 20170405
